FAERS Safety Report 7671854-0 (Version None)
Quarter: 2011Q3

REPORT INFORMATION
  Report Type: 
  Country: None (occurrence: None)
  Receive Date: 20110809
  Receipt Date: 20110726
  Transmission Date: 20111222
  Serious: Yes (Hospitalization)
  Sender: FDA-Public Use
  Company Number: GB-CELGENEUS-167-C5013-11052577

PATIENT
  Sex: Male

DRUGS (6)
  1. DOCETAXEL [Suspect]
     Dosage: 140 MILLIGRAM
     Route: 065
     Dates: start: 20110510
  2. LENALIDOMIDE [Suspect]
     Dosage: 25 MILLIGRAM
     Route: 048
     Dates: start: 20110510, end: 20110516
  3. DOCETAXEL [Suspect]
     Indication: PROSTATE CANCER
     Dosage: 140 MILLIGRAM
     Route: 065
     Dates: start: 20110215
  4. PREDNISONE [Suspect]
     Dosage: 10 MILLIGRAM
     Route: 065
     Dates: start: 20110510
  5. LENALIDOMIDE [Suspect]
     Indication: PROSTATE CANCER
     Dosage: 25 MILLIGRAM
     Route: 048
     Dates: start: 20110215
  6. PREDNISONE [Suspect]
     Indication: PROSTATE CANCER
     Dosage: 10 MILLIGRAM
     Route: 065
     Dates: start: 20110215

REACTIONS (5)
  - ORAL PAIN [None]
  - SYNCOPE [None]
  - FALL [None]
  - PYREXIA [None]
  - ANAEMIA [None]
